FAERS Safety Report 9013059 (Version 3)
Quarter: 2013Q4

REPORT INFORMATION
  Report Type: Spontaneous
  Country: US (occurrence: US)
  Receive Date: 20130114
  Receipt Date: 20131104
  Transmission Date: 20140711
  Serious: Yes (Hospitalization, Other)
  Sender: FDA-Public Use
  Company Number: US-009507513-1301USA005177

PATIENT
  Sex: Female
  Weight: 77.98 kg

DRUGS (2)
  1. NUVARING [Suspect]
     Indication: ACNE
     Dosage: UNK
     Route: 067
     Dates: start: 201006, end: 20110201
  2. NUVARING [Suspect]
     Indication: BLOOD CHOLESTEROL INCREASED

REACTIONS (13)
  - Pulmonary embolism [Recovering/Resolving]
  - Deep vein thrombosis [Unknown]
  - Thrombophlebitis superficial [Unknown]
  - Dyspnoea [Unknown]
  - Dyspnoea [Recovered/Resolved]
  - Asthma [Unknown]
  - Off label use [Unknown]
  - Pyrexia [Unknown]
  - Varicose vein [Unknown]
  - Off label use [Unknown]
  - Pulmonary embolism [Unknown]
  - Alopecia [Unknown]
  - Muscle contractions involuntary [Unknown]
